FAERS Safety Report 8950357 (Version 1)
Quarter: 2012Q4

REPORT INFORMATION
  Report Type: 
  Country: US (occurrence: US)
  Receive Date: 20121207
  Receipt Date: 20121207
  Transmission Date: 20130627
  Serious: Yes (Other)
  Sender: FDA-Public Use
  Company Number: US-009507513-1211USA012837

PATIENT

DRUGS (6)
  1. FOSAMAX [Suspect]
     Indication: OSTEOPENIA
     Dosage: UNK
     Route: 048
     Dates: start: 199604, end: 2001
  2. FOSAMAX [Suspect]
     Indication: OSTEOPOROSIS
     Dosage: UNK
     Route: 048
     Dates: start: 200306, end: 2010
  3. FOSAMAX PLUS D [Suspect]
     Indication: OSTEOPENIA
     Dosage: UNK
     Route: 048
     Dates: start: 200306, end: 2010
  4. FOSAMAX PLUS D [Suspect]
     Indication: OSTEOPOROSIS
  5. ACTONEL [Suspect]
     Indication: OSTEOPENIA
     Dosage: UNK
     Route: 048
     Dates: start: 2001, end: 200306
  6. ACTONEL [Suspect]
     Indication: OSTEOPOROSIS

REACTIONS (5)
  - Atypical femur fracture [Unknown]
  - Intramedullary rod insertion [Unknown]
  - Arthropathy [Unknown]
  - Pain in extremity [Unknown]
  - Pain in extremity [Unknown]
